APPROVED DRUG PRODUCT: METHYLENE BLUE
Active Ingredient: METHYLENE BLUE
Strength: 50MG/10ML (5MG/ML)
Dosage Form/Route: SOLUTION;INTRAVENOUS
Application: A219363 | Product #001 | TE Code: AP
Applicant: XIROMED PHARMA ESPANA SL
Approved: Jul 30, 2025 | RLD: No | RS: No | Type: RX